FAERS Safety Report 6881161-1 (Version None)
Quarter: 2010Q3

REPORT INFORMATION
  Report Type: 
  Country: None (occurrence: None)
  Receive Date: 20100727
  Receipt Date: 20100716
  Transmission Date: 20110219
  Serious: No
  Sender: FDA-Public Use
  Company Number: US-BIOGENIDEC-2010BI022671

PATIENT
  Age: 56 Year
  Sex: Female
  Weight: 54 kg

DRUGS (1)
  1. TYSABRI [Suspect]
     Indication: MULTIPLE SCLEROSIS
     Route: 042
     Dates: start: 20090625

REACTIONS (8)
  - CATARACT [None]
  - DEHYDRATION [None]
  - GLAUCOMA [None]
  - REFRACTION DISORDER [None]
  - VISUAL IMPAIRMENT [None]
  - VITREOUS DETACHMENT [None]
  - VITREOUS FLOATERS [None]
  - VITRITIS [None]
